FAERS Safety Report 6203703-1 (Version None)
Quarter: 2009Q2

REPORT INFORMATION
  Report Type: 
  Country: None (occurrence: None)
  Receive Date: 20090526
  Receipt Date: 20090526
  Transmission Date: 20091009
  Serious: Yes (Hospitalization)
  Sender: FDA-Public Use
  Company Number: None

PATIENT
  Age: 65 Year
  Sex: Male
  Weight: 94.8018 kg

DRUGS (1)
  1. DESATANIB 100MG UNSURE -FROM VA MEDICAL CENTER - [Suspect]
     Indication: CHRONIC MYELOID LEUKAEMIA
     Dosage: 100MG DAILY PO
     Route: 048
     Dates: start: 20081101, end: 20090518

REACTIONS (4)
  - CARDIAC FAILURE [None]
  - DIASTOLIC DYSFUNCTION [None]
  - PERICARDIAL EFFUSION [None]
  - PULMONARY OEDEMA [None]
